FAERS Safety Report 9684525 (Version 1)
Quarter: 2013Q4

REPORT INFORMATION
  Report Type: Spontaneous
  Country: GB (occurrence: GB)
  Receive Date: 20131112
  Receipt Date: 20131112
  Transmission Date: 20140711
  Serious: Yes (Life-Threatening)
  Sender: FDA-Public Use
  Company Number: PHFR2013GB006270

PATIENT
  Age: 64 Year
  Sex: Male
  Weight: 59 kg

DRUGS (14)
  1. CICLOSPORIN [Suspect]
     Indication: BONE MARROW TRANSPLANT
     Dosage: 90 MG BID
     Route: 042
     Dates: start: 20131023, end: 20131023
  2. NYSTATIN [Concomitant]
  3. TAZOCIN [Concomitant]
  4. AMIKACIN [Concomitant]
  5. CIPROFLOXACIN [Concomitant]
  6. ACICLOVIR [Concomitant]
  7. FLUCONAZOLE [Concomitant]
  8. CHLORHEXIDINE GLUCONATE [Concomitant]
  9. CYCLIZINE [Concomitant]
  10. HALOPERIDOL [Concomitant]
  11. ONDANSETRON [Concomitant]
  12. MYCOPHENOLATE MOFETIL [Concomitant]
  13. LOPERAMIDE [Concomitant]
  14. MAGNESIUM GLYCEROPHOSPHATE [Concomitant]

REACTIONS (6)
  - Anaphylactic reaction [Recovered/Resolved]
  - Oxygen saturation decreased [Recovered/Resolved]
  - Vision blurred [Recovered/Resolved]
  - Hot flush [Recovered/Resolved]
  - Tachycardia [Recovered/Resolved]
  - Blood pressure decreased [Recovered/Resolved]
